FAERS Safety Report 20222995 (Version 2)
Quarter: 2022Q1

REPORT INFORMATION
  Report Type: Spontaneous
  Country: JP (occurrence: JP)
  Receive Date: 20211223
  Receipt Date: 20220222
  Transmission Date: 20220424
  Serious: Yes (Hospitalization)
  Sender: FDA-Public Use
  Company Number: JP-CELGENE-JPN-20211205736

PATIENT
  Age: 65 Year
  Sex: Male

DRUGS (2)
  1. ABRAXANE [Suspect]
     Active Substance: PACLITAXEL
     Indication: Adenocarcinoma pancreas
     Route: 041
  2. GEMCITABINE [Concomitant]
     Active Substance: GEMCITABINE
     Indication: Adenocarcinoma pancreas
     Route: 041

REACTIONS (2)
  - Pancreatitis necrotising [Recovering/Resolving]
  - Colonic fistula [Recovering/Resolving]
